FAERS Safety Report 16431382 (Version 1)
Quarter: 2019Q2

REPORT INFORMATION
  Report Type: Report from Study
  Country: DE (occurrence: DE)
  Receive Date: 20190614
  Receipt Date: 20190614
  Transmission Date: 20190711
  Serious: Yes (Hospitalization, Other)
  Sender: FDA-Public Use
  Company Number: DE-PFIZER INC-2019248948

PATIENT
  Age: 79 Year
  Sex: Female
  Weight: 77 kg

DRUGS (23)
  1. FLUOROURACIL. [Suspect]
     Active Substance: FLUOROURACIL
     Indication: COLORECTAL CANCER METASTATIC
     Dosage: 4440 MG, UNK
     Route: 042
     Dates: start: 20180423
  2. FLUOROURACIL. [Suspect]
     Active Substance: FLUOROURACIL
     Dosage: 4390 MG, UNK
     Route: 042
     Dates: start: 20180611
  3. VECTIBIX [Suspect]
     Active Substance: PANITUMUMAB
     Indication: COLORECTAL CANCER METASTATIC
     Dosage: 455 MG, UNK
     Route: 042
     Dates: start: 20180423
  4. IRINOTECAN HCL [Suspect]
     Active Substance: IRINOTECAN HYDROCHLORIDE
     Dosage: 325 MG, UNK
     Route: 065
     Dates: start: 20180611
  5. FLUOROURACIL. [Suspect]
     Active Substance: FLUOROURACIL
     Dosage: 740 MG, UNK
     Route: 040
     Dates: start: 20180423
  6. AMLODIPINE [Concomitant]
     Active Substance: AMLODIPINE BESYLATE
     Indication: HYPERTENSION
     Dosage: 5 MG, 1X/DAY
     Route: 048
  7. CALCIUM FOLINATE [Suspect]
     Active Substance: LEUCOVORIN CALCIUM
     Dosage: 720 MG, UNK
     Route: 065
     Dates: start: 20180802
  8. CALCIUM FOLINATE [Suspect]
     Active Substance: LEUCOVORIN CALCIUM
     Dosage: 730 MILLIGRAM
     Route: 065
     Dates: start: 20180611
  9. IRINOTECAN HCL [Suspect]
     Active Substance: IRINOTECAN HYDROCHLORIDE
     Indication: COLORECTAL CANCER METASTATIC
     Dosage: 335 MG, UNK
     Route: 065
     Dates: start: 20180423
  10. FLUOROURACIL. [Suspect]
     Active Substance: FLUOROURACIL
     Dosage: 550 MG, UNK
     Route: 040
     Dates: start: 20180611
  11. VECTIBIX [Suspect]
     Active Substance: PANITUMUMAB
     Dosage: 420 MG, UNK
     Route: 042
     Dates: start: 20180802
  12. DEKRISTOL [Concomitant]
     Active Substance: CHOLECALCIFEROL
     Indication: VITAMIN D DEFICIENCY
     Dosage: 1 IU, WEEKLY
     Route: 048
     Dates: start: 20171030
  13. SELENASE [SODIUM SELENITE] [Concomitant]
     Indication: SELENIUM DEFICIENCY
     Dosage: 100 UG, 1X/DAY
     Route: 048
  14. FLUOROURACIL. [Suspect]
     Active Substance: FLUOROURACIL
     Dosage: 4365 MG, UNK
     Route: 042
     Dates: start: 20180625
  15. FLUOROURACIL. [Suspect]
     Active Substance: FLUOROURACIL
     Dosage: 540 MG, UNK
     Route: 040
     Dates: start: 20180802
  16. VECTIBIX [Suspect]
     Active Substance: PANITUMUMAB
     Dosage: 435 MG, UNK
     Route: 042
     Dates: start: 20180625
  17. CALCIUM FOLINATE [Suspect]
     Active Substance: LEUCOVORIN CALCIUM
     Indication: COLORECTAL CANCER METASTATIC
     Dosage: 740 MG, UNK
     Route: 065
     Dates: start: 20180423
  18. FLUOROURACIL. [Suspect]
     Active Substance: FLUOROURACIL
     Dosage: 4315 MG, UNK
     Route: 042
     Dates: start: 20180802
  19. VECTIBIX [Suspect]
     Active Substance: PANITUMUMAB
     Dosage: 440 MG, UNK
     Route: 042
     Dates: start: 20180611
  20. IRINOTECAN HCL [Suspect]
     Active Substance: IRINOTECAN HYDROCHLORIDE
     Dosage: 320 MG, UNK
     Route: 065
     Dates: start: 20180802
  21. BISOPROLOL [Concomitant]
     Active Substance: BISOPROLOL
     Indication: HYPERTENSION
     Dosage: 5 MG, 1X/DAY
     Route: 048
  22. RESTEX [Concomitant]
     Active Substance: BENSERAZIDE\LEVODOPA
     Indication: RESTLESS LEGS SYNDROME
     Dosage: 2 UNK, 1X/DAY
     Route: 048
  23. CANDESARTAN. [Concomitant]
     Active Substance: CANDESARTAN
     Indication: HYPERTENSION
     Dosage: 4 MG, 1X/DAY
     Route: 048

REACTIONS (2)
  - Embolism [Recovered/Resolved]
  - Pulmonary embolism [Recovered/Resolved]

NARRATIVE: CASE EVENT DATE: 20180822
